FAERS Safety Report 20003655 (Version 1)
Quarter: 2021Q4

REPORT INFORMATION
  Report Type: Spontaneous
  Country: PT (occurrence: PT)
  Receive Date: 20211028
  Receipt Date: 20211028
  Transmission Date: 20220303
  Serious: Yes (Other)
  Sender: FDA-Public Use
  Company Number: PT-PIRAMAL PHARMA LIMITED-2021-PEL-000764

PATIENT
  Age: 34 Year
  Sex: Female

DRUGS (3)
  1. ROPIVACAINE. [Suspect]
     Active Substance: ROPIVACAINE HYDROCHLORIDE
     Indication: Epidural analgesia
     Dosage: 5 MILLIGRAM
     Route: 065
  2. ROPIVACAINE. [Suspect]
     Active Substance: ROPIVACAINE HYDROCHLORIDE
     Dosage: 10 MILLIGRAM (4 ADDITIONAL BOLUSES OF 10 MILLIGRAM (0.2 PERCENT) )
     Route: 065
  3. FENTANYL [Suspect]
     Active Substance: FENTANYL
     Indication: Epidural analgesia
     Dosage: 50 MICROGRAM
     Route: 065

REACTIONS (5)
  - Horner^s syndrome [Unknown]
  - Maternal exposure during delivery [Unknown]
  - Vomiting [Recovered/Resolved]
  - Off label use [Unknown]
  - Product use issue [Unknown]
